FAERS Safety Report 5472393-8 (Version None)
Quarter: 2007Q3

REPORT INFORMATION
  Report Type: 
  Country: None (occurrence: None)
  Receive Date: 20070927
  Receipt Date: 20070913
  Transmission Date: 20080115
  Serious: Yes (Death)
  Sender: FDA-Public Use
  Company Number: 2007S1006720

PATIENT
  Age: 42 Year
  Sex: Male
  Weight: 126.5536 kg

DRUGS (11)
  1. CLOZAPINE [Suspect]
     Dosage: 300 MG; TWICE A DAY; ORAL; 200 MG; 3 TIMES A DAY; ORAL
     Route: 048
     Dates: end: 20070716
  2. CLOZAPINE [Suspect]
     Dosage: 300 MG; TWICE A DAY; ORAL; 200 MG; 3 TIMES A DAY; ORAL
     Route: 048
     Dates: start: 20070601
  3. TOPAMAX (CON.) [Concomitant]
  4. TRAZODONE /00447702/ (CON.) [Concomitant]
  5. ATENOLOL (CON.) [Concomitant]
  6. KCL (CON.) [Concomitant]
  7. FUROSEMIDE (CON.) [Concomitant]
  8. GLIPIZIDE (CON.) [Concomitant]
  9. METFORMIN (CON.) [Concomitant]
  10. GEMFIBROZIL (CON.) [Concomitant]
  11. ABILIFY (CON.) [Concomitant]

REACTIONS (3)
  - DRUG INEFFECTIVE [None]
  - PHARMACEUTICAL PRODUCT COMPLAINT [None]
  - SLEEP APNOEA SYNDROME [None]
